FAERS Safety Report 8995015 (Version 6)
Quarter: 2013Q3

REPORT INFORMATION
  Report Type: Spontaneous
  Country: JP (occurrence: None)
  Receive Date: 20121221
  Receipt Date: 20130802
  Transmission Date: 20140515
  Serious: Yes (Life-Threatening, Hospitalization, Disabling)
  Sender: FDA-Public Use
  Company Number: TCI2012A06028

PATIENT
  Age: 76 Year
  Sex: Male

DRUGS (20)
  1. TAKEPRON OD [Suspect]
     Indication: PROPHYLAXIS
     Dosage: 15 MG, 1 -1 D
     Route: 048
     Dates: start: 20120827, end: 20120829
  2. TAKEPRON OD [Suspect]
     Indication: STEROID THERAPY
     Dosage: 15 MG, 1 -1 D
     Route: 048
     Dates: start: 20120827, end: 20120829
  3. TAKEPRON OD [Suspect]
     Indication: ADVERSE REACTION
     Dosage: 15 MG, 1 -1 D
     Route: 048
     Dates: start: 20120827, end: 20120829
  4. TAKEPRON INJECTION 30MG (LANSOPRAZOLE) [Suspect]
     Dosage: 30 MG (30 MG, 1 IN 1 D)
     Route: 042
     Dates: start: 20120814, end: 20120826
  5. HERBAL EXTRACT NOS [Concomitant]
  6. MALFA (MAGNESIUM HYDROXIDE, ALUMINIUM HYDROXIDE GEL) [Concomitant]
  7. AMOBAN (ZOPICLONE) [Concomitant]
  8. PURSENNID (SENNOSIDE A+B CALCIUM) [Concomitant]
  9. PREDONINE (PREDNISOLONE) [Concomitant]
  10. HORIZON (DIAZEPAM) [Concomitant]
  11. METHYCOBAL (MECOBALAMIN) [Concomitant]
  12. LAXOBERON (SODIUM PICOSULFATE) [Concomitant]
  13. MUCODYNE (CARBOCISTEINE) [Concomitant]
  14. ASVERIN (TIPEPIDINE HIBENZATE) [Concomitant]
  15. CORTICOSTEROIDS [Concomitant]
  16. MICOMBI BP (HYDROCHLOROTHIAZIDE, TELMISARTAN) [Concomitant]
  17. JUVELA N (TOCOPHERYL NICOTINATE) [Concomitant]
  18. CEPHADOL (DIFENIDOL HYDROCHLORIDE) [Concomitant]
  19. DOGMATYL (SULPIRIDE) [Concomitant]
  20. MAGMITT (MAGNESIUM OXIDE) [Concomitant]

REACTIONS (13)
  - Myelitis [None]
  - Paralysis [None]
  - Leukopenia [None]
  - Neutropenia [None]
  - Pyrexia [None]
  - Muscular weakness [None]
  - Activities of daily living impaired [None]
  - Acquired syringomyelia [None]
  - Spinal cord neoplasm [None]
  - Blood creatine phosphokinase increased [None]
  - Vomiting [None]
  - Hiccups [None]
  - Fluid intake reduced [None]
